FAERS Safety Report 6814589-6 (Version None)
Quarter: 2010Q2

REPORT INFORMATION
  Report Type: 
  Country: None (occurrence: None)
  Receive Date: 20100629
  Receipt Date: 20100616
  Transmission Date: 20101027
  Serious: Yes (Hospitalization)
  Sender: FDA-Public Use
  Company Number: 2010AP001012

PATIENT
  Age: 65 Year
  Sex: Male

DRUGS (13)
  1. MYCOPHENOLATE MOFETIL [Suspect]
     Indication: GRAFT VERSUS HOST DISEASE
     Dosage: PO
     Route: 048
     Dates: start: 20100204
  2. ACYCLOVIR [Concomitant]
  3. AMIKACIN [Concomitant]
  4. BISOPROLOL FUMARATE [Concomitant]
  5. CYCLOSPORINE [Concomitant]
  6. ENOXAPARIN SODIUM [Concomitant]
  7. FUROSEMIDE [Concomitant]
  8. FILGRASTIM (FILGRASTIM) [Concomitant]
  9. ITRACONAZOLE [Concomitant]
  10. RAMIPRIL [Concomitant]
  11. SPIRONOLACTONE [Concomitant]
  12. PIPERACILLIN SODIUM [Concomitant]
  13. TAZOBACTAM SODIUM (TAZOBACTAM SODIUM) [Concomitant]

REACTIONS (4)
  - ABDOMINAL DISTENSION [None]
  - CHEST X-RAY ABNORMAL [None]
  - DIARRHOEA [None]
  - PNEUMATOSIS INTESTINALIS [None]
